FAERS Safety Report 6335956-3 (Version None)
Quarter: 2009Q3

REPORT INFORMATION
  Report Type: 
  Country: None (occurrence: None)
  Receive Date: 20090901
  Receipt Date: 20080513
  Transmission Date: 20100115
  Serious: Yes (Other)
  Sender: FDA-Public Use
  Company Number: US-ASTRAZENECA-2007UW09135

PATIENT
  Age: 13590 Day
  Sex: Male
  Weight: 133.4 kg

DRUGS (13)
  1. SEROQUEL [Suspect]
     Indication: SCHIZOPHRENIA
     Route: 048
     Dates: start: 20021230
  2. SEROQUEL [Suspect]
     Indication: DEPRESSION
     Route: 048
     Dates: start: 20021230
  3. SEROQUEL [Suspect]
     Dosage: 200 MG - 300 MG
     Route: 048
     Dates: start: 20030110, end: 20070621
  4. SEROQUEL [Suspect]
     Dosage: 200 MG - 300 MG
     Route: 048
     Dates: start: 20030110, end: 20070621
  5. ABILIFY [Suspect]
     Dates: start: 20030101
  6. ZOLOFT [Concomitant]
     Route: 048
     Dates: start: 20050721
  7. AMBIEN CR [Concomitant]
     Route: 048
     Dates: start: 20060504
  8. NEURONTIN [Concomitant]
     Dosage: STRENGTH 100 MG, 300 MG  DOSE 300 MG - 900 MG
     Route: 048
     Dates: start: 20050721
  9. SINGULAIR [Concomitant]
     Route: 048
     Dates: start: 20050906
  10. ZESTRIL [Concomitant]
     Route: 048
     Dates: start: 20050124
  11. QUINAPRIL [Concomitant]
     Dosage: STRENGTH 10 MG - 40 MG DAILY
     Route: 048
     Dates: start: 20050124
  12. GEODON [Concomitant]
     Route: 048
     Dates: start: 20070621
  13. ULTRACET [Concomitant]
     Indication: PAIN
     Dosage: 37.5/325 MG EVERY 8 HRS AS REQUIRED
     Route: 048
     Dates: start: 20051206

REACTIONS (3)
  - DIABETES MELLITUS [None]
  - DIABETIC NEUROPATHY [None]
  - TYPE 2 DIABETES MELLITUS [None]
